FAERS Safety Report 7396634-5 (Version None)
Quarter: 2011Q2

REPORT INFORMATION
  Report Type: 
  Country: None (occurrence: None)
  Receive Date: 20110406
  Receipt Date: 20110401
  Transmission Date: 20111010
  Serious: Yes (Other)
  Sender: FDA-Public Use
  Company Number: PHHY2011US27232

PATIENT
  Sex: Male

DRUGS (9)
  1. METFORMIN HYDROCHLORIDE [Concomitant]
     Dosage: 850 UKN, BID
  2. CLONIDINE [Concomitant]
     Dosage: 0.3 MG, UNK
  3. BYSTOLIC [Concomitant]
     Dosage: 5 MG, UNK
  4. GLIPIZIDE [Concomitant]
     Dosage: 5 MG, UNK
  5. LISINOPRIL [Concomitant]
     Dosage: 40 MG, UNK
  6. STALEVO 100 [Suspect]
     Dosage: 125 MG, QID
     Route: 048
  7. BENICAR HCT [Concomitant]
  8. PROZAC [Concomitant]
     Dosage: 20 MG, UNK
  9. CARBIDOPA + LEVODOPA [Concomitant]

REACTIONS (4)
  - ARTHRITIS [None]
  - NERVOUSNESS [None]
  - DEPRESSION [None]
  - MUSCULOSKELETAL DISCOMFORT [None]
